FAERS Safety Report 18984855 (Version 2)
Quarter: 2021Q1

REPORT INFORMATION
  Report Type: Spontaneous
  Country: GB (occurrence: GB)
  Receive Date: 20210309
  Receipt Date: 20210316
  Transmission Date: 20210420
  Serious: Yes (Other)
  Sender: FDA-Public Use
  Company Number: GB-CELLTRION INC.-2021GB002864

PATIENT

DRUGS (1)
  1. REMSIMA [Suspect]
     Active Substance: INFLIXIMAB
     Indication: CROHN^S DISEASE
     Dosage: 120 MILLIGRAM, EVERY WEEK
     Route: 058
     Dates: start: 202006

REACTIONS (3)
  - Intentional dose omission [Unknown]
  - Lower respiratory tract infection [Unknown]
  - Off label use [Unknown]
